FAERS Safety Report 9436053 (Version 2)
Quarter: 2013Q3

REPORT INFORMATION
  Report Type: Report from Study
  Country: GB (occurrence: GB)
  Receive Date: 20130801
  Receipt Date: 20130815
  Transmission Date: 20140515
  Serious: Yes (Other)
  Sender: FDA-Public Use
  Company Number: GB-B.I. PHARMACEUTICALS,INC./RIDGEFIELD-2013-BI-23050BP

PATIENT
  Age: 39 Year
  Sex: Female

DRUGS (2)
  1. VIRAMUNE [Suspect]
     Dosage: 400 MG
     Route: 048
     Dates: start: 20100407
  2. TENOFOVIR DF + EMTRICITABINE [Suspect]
     Dosage: 1 U
     Route: 048
     Dates: start: 20100407

REACTIONS (1)
  - Abortion spontaneous [Unknown]
